FAERS Safety Report 6382308-6 (Version None)
Quarter: 2009Q3

REPORT INFORMATION
  Report Type: 
  Country: None (occurrence: None)
  Receive Date: 20090930
  Receipt Date: 20090918
  Transmission Date: 20100115
  Serious: Yes (Hospitalization)
  Sender: FDA-Public Use
  Company Number: CN-TYCO HEALTHCARE/MALLINCKRODT-T200901767

PATIENT
  Age: 19 Year
  Sex: Male

DRUGS (1)
  1. TRAMADOL HCL [Suspect]

REACTIONS (2)
  - DRUG TOXICITY [None]
  - MULTI-ORGAN FAILURE [None]
